FAERS Safety Report 4468357-3 (Version None)
Quarter: 2004Q4

REPORT INFORMATION
  Report Type: 
  Country: None (occurrence: None)
  Receive Date: 20041006
  Receipt Date: 20040924
  Transmission Date: 20050328
  Serious: Yes (Life-Threatening, Hospitalization)
  Sender: FDA-Public Use
  Company Number: 2004069804

PATIENT
  Age: 18 Year
  Sex: Female

DRUGS (2)
  1. SUDAFED 12 HOUR [Suspect]
     Indication: NASOPHARYNGITIS
     Dosage: 2 TABLETS Q 4 TO 6 HOURS, ORAL
     Route: 048
     Dates: start: 20040922, end: 20040924
  2. ETHANOL (ETHANOL) [Suspect]
     Dosage: ORAL
     Route: 048
     Dates: start: 20040923

REACTIONS (3)
  - PHARYNGITIS [None]
  - RESPIRATORY ARREST [None]
  - VOMITING [None]
